FAERS Safety Report 22644863 (Version 1)
Quarter: 2023Q2

REPORT INFORMATION
  Report Type: Spontaneous
  Country: ES (occurrence: ES)
  Receive Date: 20230627
  Receipt Date: 20230627
  Transmission Date: 20230722
  Serious: Yes (Hospitalization)
  Sender: FDA-Public Use
  Company Number: None

PATIENT
  Age: 45 Year
  Sex: Female

DRUGS (2)
  1. VENETOCLAX [Suspect]
     Active Substance: VENETOCLAX
     Indication: Myeloid leukaemia
     Dosage: VENCLYXTO 10 MG FILM-COATED TABLETS
     Route: 048
     Dates: start: 20230329, end: 20230411
  2. DACOGEN [Suspect]
     Active Substance: DECITABINE
     Indication: Myeloid leukaemia
     Route: 042
     Dates: start: 20230329, end: 20230402

REACTIONS (3)
  - Mixed liver injury [Recovering/Resolving]
  - Acute interstitial pneumonitis [Recovering/Resolving]
  - Agranulocytosis [Recovered/Resolved]

NARRATIVE: CASE EVENT DATE: 20230418
